FAERS Safety Report 5593922-X (Version None)
Quarter: 2007Q4

REPORT INFORMATION
  Report Type: 
  Country: None (occurrence: None)
  Receive Date: 20071218
  Receipt Date: 20070320
  Transmission Date: 20080405
  Serious: Yes (Hospitalization, Other)
  Sender: FDA-Public Use
  Company Number: 2007022308

PATIENT
  Age: 56 Year
  Sex: Male
  Weight: 81.6 kg

DRUGS (1)
  1. BEXTRA [Suspect]
     Indication: ARTHRITIS
     Dosage: 40 MG (20 MG, 2 IN 1 D)
     Dates: start: 20020101

REACTIONS (2)
  - DEPRESSION [None]
  - MYOCARDIAL INFARCTION [None]
